FAERS Safety Report 16533478 (Version 1)
Quarter: 2019Q3

REPORT INFORMATION
  Report Type: Spontaneous
  Country: US (occurrence: US)
  Receive Date: 20190705
  Receipt Date: 20190705
  Transmission Date: 20191004
  Serious: No
  Sender: FDA-Public Use
  Company Number: US-TEVA-2019-US-1071514

PATIENT
  Sex: Female

DRUGS (7)
  1. PACERONE [Concomitant]
     Active Substance: AMIODARONE HYDROCHLORIDE
     Dosage: 400 MG
     Dates: start: 20181210
  2. WARFARIN [Suspect]
     Active Substance: WARFARIN
     Route: 065
  3. LOSARTAN. [Concomitant]
     Active Substance: LOSARTAN
     Dosage: 25 MILLIGRAM DAILY;
     Route: 065
     Dates: start: 20181210
  4. FUROSEMIDE. [Suspect]
     Active Substance: FUROSEMIDE
     Indication: FLUID RETENTION
     Dosage: INCREASE
     Route: 065
  5. AMIODARONE HCL [Concomitant]
     Active Substance: AMIODARONE HYDROCHLORIDE
     Indication: ARRHYTHMIA
     Dates: start: 20190107
  6. POTASSIUM [Concomitant]
     Active Substance: POTASSIUM
     Dosage: INCREASE
  7. LOSARTAN. [Concomitant]
     Active Substance: LOSARTAN
     Dosage: 25 MILLIGRAM DAILY;
     Route: 065
     Dates: start: 20190107

REACTIONS (8)
  - Wheezing [Unknown]
  - Asthenia [Unknown]
  - Drug intolerance [Unknown]
  - Cough [Unknown]
  - Balance disorder [Unknown]
  - Dyspnoea [Unknown]
  - Fatigue [Unknown]
  - Constipation [Unknown]
